FAERS Safety Report 14875377 (Version 10)
Quarter: 2018Q4

REPORT INFORMATION
  Report Type: Spontaneous
  Country: US (occurrence: US)
  Receive Date: 20180510
  Receipt Date: 20181228
  Transmission Date: 20190204
  Serious: Yes (Other)
  Sender: FDA-Public Use
  Company Number: PHEH2018US018030

PATIENT
  Age: 32 Year
  Sex: Female
  Weight: 72.56 kg

DRUGS (3)
  1. ZOFRAN ODT [Suspect]
     Active Substance: ONDANSETRON HYDROCHLORIDE
     Indication: PRODUCT USED FOR UNKNOWN INDICATION
     Route: 048
  2. ZOFRAN [Suspect]
     Active Substance: ONDANSETRON HYDROCHLORIDE
     Indication: PRODUCT USED FOR UNKNOWN INDICATION
     Route: 042
  3. ZOFRAN [Suspect]
     Active Substance: ONDANSETRON HYDROCHLORIDE
     Indication: MORNING SICKNESS
     Dosage: 8 MG, Q12H, PRN
     Route: 048
     Dates: start: 20050207, end: 20050309

REACTIONS (10)
  - Premature delivery [Unknown]
  - Anxiety [Unknown]
  - Product use in unapproved indication [Unknown]
  - Maternal exposure during pregnancy [Unknown]
  - Premature labour [Unknown]
  - Emotional distress [Unknown]
  - Polyhydramnios [Unknown]
  - Breech presentation [Unknown]
  - Gastroenteritis [Unknown]
  - Injury [Unknown]

NARRATIVE: CASE EVENT DATE: 20050620
